FAERS Safety Report 11476606 (Version 1)
Quarter: 2015Q3

REPORT INFORMATION
  Report Type: Spontaneous
  Country: US (occurrence: US)
  Receive Date: 20150909
  Receipt Date: 20150909
  Transmission Date: 20151125
  Serious: No
  Sender: FDA-Public Use
  Company Number: US-GLAXOSMITHKLINE-US2015GSK092822

PATIENT
  Sex: Female

DRUGS (2)
  1. BENZOYL PEROXIDE + CLINDAMYCIN PHOSPHATE GEL [Suspect]
     Active Substance: BENZOYL PEROXIDE\CLINDAMYCIN PHOSPHATE
     Indication: PRODUCT USED FOR UNKNOWN INDICATION
     Dosage: 1.2%-5%, 45G
  2. CLINDOXYL [Suspect]
     Active Substance: BENZOYL PEROXIDE\CLINDAMYCIN PHOSPHATE
     Indication: PRODUCT USED FOR UNKNOWN INDICATION
     Dosage: 1.2%-5%, 45G

REACTIONS (3)
  - Application site erythema [Unknown]
  - Erythema [Unknown]
  - Incorrect product storage [Unknown]
